FAERS Safety Report 9424972 (Version 2)
Quarter: 2013Q3

REPORT INFORMATION
  Report Type: Spontaneous
  Country: US (occurrence: US)
  Receive Date: 20130729
  Receipt Date: 20130814
  Transmission Date: 20140515
  Serious: Yes (Other)
  Sender: FDA-Public Use
  Company Number: US-PFIZER INC-2013219940

PATIENT
  Age: 46 Year
  Sex: Female
  Weight: 58.96 kg

DRUGS (5)
  1. PRISTIQ [Suspect]
     Indication: ANXIETY
     Dosage: 50 MG DAILY
     Route: 048
     Dates: start: 20130724, end: 20130726
  2. PRISTIQ [Suspect]
     Indication: PREMENSTRUAL SYNDROME
  3. PROZAC [Suspect]
     Indication: ANXIETY
     Dosage: 10 MG, AS NEEDED (DAILY PRN)
     Route: 048
     Dates: start: 1998, end: 20130722
  4. PROZAC [Suspect]
     Indication: PREMENSTRUAL SYNDROME
  5. CAFFEINE [Suspect]
     Dosage: UNK

REACTIONS (13)
  - Off label use [Unknown]
  - Dizziness [Recovered/Resolved]
  - Somnolence [Recovered/Resolved]
  - Poor quality sleep [Recovered/Resolved]
  - Abdominal pain [Recovered/Resolved]
  - Nausea [Recovered/Resolved]
  - Headache [Recovered/Resolved]
  - Diarrhoea [Recovered/Resolved]
  - Tremor [Recovered/Resolved]
  - Vision blurred [Recovered/Resolved]
  - Malaise [Unknown]
  - Back pain [Unknown]
  - Pain [Unknown]
